FAERS Safety Report 6086301-2 (Version None)
Quarter: 2009Q1

REPORT INFORMATION
  Report Type: 
  Country: None (occurrence: None)
  Receive Date: 20090220
  Receipt Date: 20090215
  Transmission Date: 20090719
  Serious: No
  Sender: FDA-Public Use
  Company Number: US-B.I. PHARMACEUTICALS,INC./RIDGEFIELD-2009-BP-01959BP

PATIENT
  Sex: Female

DRUGS (6)
  1. ZANTAC [Suspect]
     Indication: ULCER
     Dosage: 300MG
     Route: 048
     Dates: start: 20090201
  2. ZOLOFT [Concomitant]
  3. LEVOTHYROX [Concomitant]
     Indication: THYROID DISORDER
  4. ATENOLOL [Concomitant]
     Indication: BLOOD PRESSURE INCREASED
  5. TRIAMTERENE AND HYDROCHLOROTHIAZIDE [Concomitant]
     Indication: BLOOD PRESSURE INCREASED
  6. VITAMINS [Concomitant]
     Indication: SUPPLEMENTATION THERAPY

REACTIONS (5)
  - ARTHRALGIA [None]
  - FLUID RETENTION [None]
  - MENTAL IMPAIRMENT [None]
  - PAIN IN EXTREMITY [None]
  - PARAESTHESIA [None]
